FAERS Safety Report 6142504-X (Version None)
Quarter: 2009Q2

REPORT INFORMATION
  Report Type: 
  Country: None (occurrence: None)
  Receive Date: 20090402
  Receipt Date: 20090402
  Transmission Date: 20091009
  Serious: No
  Sender: FDA-Public Use
  Company Number: None

PATIENT
  Age: 54 Year
  Sex: Female
  Weight: 68.0396 kg

DRUGS (1)
  1. FOSAMAX PLUS D [Suspect]
     Indication: OSTEOPOROSIS
     Dosage: 1 TABLET WEEKLY
     Dates: start: 20061001, end: 20090315

REACTIONS (5)
  - ANKLE FRACTURE [None]
  - BONE MARROW OEDEMA [None]
  - LIGAMENT RUPTURE [None]
  - OSTEOGENESIS IMPERFECTA [None]
  - TIBIA FRACTURE [None]
